FAERS Safety Report 18290326 (Version 3)
Quarter: 2021Q4

REPORT INFORMATION
  Report Type: Spontaneous
  Country: JP (occurrence: JP)
  Receive Date: 20200921
  Receipt Date: 20211111
  Transmission Date: 20220303
  Serious: Yes (Death, Other)
  Sender: FDA-Public Use
  Company Number: JP-PFIZER INC-2020363419

PATIENT
  Age: 77 Year
  Sex: Male

DRUGS (3)
  1. BRAFTOVI [Suspect]
     Active Substance: ENCORAFENIB
     Indication: Malignant melanoma
     Dosage: UNK
     Route: 048
     Dates: start: 20200623
  2. BRAFTOVI [Suspect]
     Active Substance: ENCORAFENIB
     Dosage: UNK
     Route: 048
     Dates: start: 20200929, end: 20210224
  3. MEKTOVI [Suspect]
     Active Substance: BINIMETINIB
     Indication: Malignant melanoma
     Dosage: UNK
     Route: 048
     Dates: start: 20200623, end: 20210224

REACTIONS (5)
  - Second primary malignancy [Fatal]
  - Neoplasm malignant [Fatal]
  - Neoplasm progression [Fatal]
  - Interstitial lung disease [Not Recovered/Not Resolved]
  - Drug eruption [Unknown]

NARRATIVE: CASE EVENT DATE: 20200915
